FAERS Safety Report 9852796 (Version 1)
Quarter: 2014Q1

REPORT INFORMATION
  Report Type: Spontaneous
  Country: TR (occurrence: None)
  Receive Date: 20140127
  Receipt Date: 20140127
  Transmission Date: 20141002
  Serious: Yes (Other)
  Sender: FDA-Public Use
  Company Number: 2014P1000396

PATIENT
  Age: 20 Year
  Sex: Female

DRUGS (2)
  1. OLANZAPINE [Suspect]
     Indication: ACUTE PSYCHOSIS
     Route: 048
  2. SERTRALINE [Suspect]
     Indication: ACUTE PSYCHOSIS

REACTIONS (1)
  - Oedema peripheral [None]
